FAERS Safety Report 4369221-0 (Version None)
Quarter: 2004Q2

REPORT INFORMATION
  Report Type: 
  Country: None (occurrence: None)
  Receive Date: 20040603
  Receipt Date: 20031016
  Transmission Date: 20050107
  Serious: No
  Sender: FDA-Public Use
  Company Number: US-GLAXOSMITHKLINE-A0430607A

PATIENT
  Age: 37 Year
  Sex: Female

DRUGS (5)
  1. AUGMENTIN XR [Suspect]
     Indication: ILL-DEFINED DISORDER
     Dosage: 2TAB THREE TIMES PER DAY
     Route: 048
  2. AUGMENTIN [Suspect]
     Indication: ACUTE SINUSITIS
     Route: 048
     Dates: start: 20030815
  3. AUGMENTIN ES-600 [Concomitant]
     Indication: ILL-DEFINED DISORDER
     Route: 048
  4. FLUOROQUINOLONE [Concomitant]
  5. TEQUIN [Concomitant]

REACTIONS (3)
  - DYSPHAGIA [None]
  - TONGUE DESQUAMATION [None]
  - TONGUE DISCOLOURATION [None]
